FAERS Safety Report 15060610 (Version 1)
Quarter: 2018Q2

REPORT INFORMATION
  Report Type: Spontaneous
  Country: CA (occurrence: CA)
  Receive Date: 20180625
  Receipt Date: 20180625
  Transmission Date: 20180711
  Serious: Yes (Life-Threatening)
  Sender: FDA-Public Use
  Company Number: CA-TEVA-2018-CA-912617

PATIENT
  Age: 45 Year
  Sex: Male
  Weight: 71 kg

DRUGS (10)
  1. MINOCYCLINE [Suspect]
     Active Substance: MINOCYCLINE\MINOCYCLINE HYDROCHLORIDE
     Indication: ACNE
     Route: 048
  2. BISOPROLOL [Concomitant]
     Active Substance: BISOPROLOL
  3. LANTUS [Concomitant]
     Active Substance: INSULIN GLARGINE
  4. PANTOPRAZOLE [Concomitant]
     Active Substance: PANTOPRAZOLE
  5. APIDRA [Concomitant]
     Active Substance: INSULIN GLULISINE
     Route: 058
  6. ASA [Concomitant]
     Active Substance: ASPIRIN
  7. ATORVASTATIN [Concomitant]
     Active Substance: ATORVASTATIN
  8. RENAGEL [Concomitant]
     Active Substance: SEVELAMER HYDROCHLORIDE
  9. CINACALCET. [Concomitant]
     Active Substance: CINACALCET
  10. PREGABALIN. [Concomitant]
     Active Substance: PREGABALIN

REACTIONS (1)
  - Hypoglycaemia [Recovered/Resolved]
